FAERS Safety Report 13550668 (Version 1)
Quarter: 2017Q2

REPORT INFORMATION
  Report Type: Spontaneous
  Country: US (occurrence: US)
  Receive Date: 20170516
  Receipt Date: 20170516
  Transmission Date: 20170830
  Serious: Yes (Disabling)
  Sender: FDA-Public Use
  Company Number: None

PATIENT
  Age: 70 Year
  Sex: Male
  Weight: 93.07 kg

DRUGS (9)
  1. ASA [Concomitant]
     Active Substance: ASPIRIN
  2. HCTZ [Concomitant]
     Active Substance: HYDROCHLOROTHIAZIDE
  3. MELOXICAM. [Concomitant]
     Active Substance: MELOXICAM
  4. RANITADINE [Concomitant]
  5. CIPRO [Suspect]
     Active Substance: CIPROFLOXACIN HYDROCHLORIDE
     Indication: PROSTATIC OPERATION
     Route: 048
     Dates: start: 20170331, end: 20170403
  6. RED YEAST RICE [Concomitant]
     Active Substance: DIETARY SUPPLEMENT
  7. LISINOPRIL. [Concomitant]
     Active Substance: LISINOPRIL
  8. LATANOPROST. [Concomitant]
     Active Substance: LATANOPROST
  9. CALCIUM [Concomitant]
     Active Substance: CALCIUM

REACTIONS (3)
  - Arthralgia [None]
  - Discomfort [None]
  - Tenosynovitis [None]

NARRATIVE: CASE EVENT DATE: 20170412
